FAERS Safety Report 8015502-9 (Version None)
Quarter: 2011Q4

REPORT INFORMATION
  Report Type: 
  Country: None (occurrence: None)
  Receive Date: 20111223
  Receipt Date: 20111021
  Transmission Date: 20120403
  Serious: Yes (Death)
  Sender: FDA-Public Use
  Company Number: ABR_00275_2011

PATIENT
  Sex: Female
  Weight: 25.7 kg

DRUGS (22)
  1. CARBOCISTEINE LYSINE [Concomitant]
  2. AMBROXOL HYDROCHLORIDE [Concomitant]
  3. MONOAMMONIUM GLYCYRRHIZINATE [Concomitant]
  4. GABAPENTIN [Concomitant]
  5. DORIPENEM MONOHYDRATE [Concomitant]
  6. TEICOPLANIN [Concomitant]
  7. CLOBAZAM [Concomitant]
  8. ETHYL LOFLAZEPATE [Concomitant]
  9. ALBUMIN TANNATE [Concomitant]
  10. ANTIBIOTICS-RESISTANT LACTIC ACID BACTERIAE [Concomitant]
  11. AMPHOTERICIN B [Suspect]
     Indication: PNEUMONIA
     Dosage: (100 MG INTRAVENOUS (NOT OTHERWISE SPECIFIED) (100 MG QD INTRAVENOUS (NOT OTHERWISE SPECIFIED)
     Route: 042
     Dates: start: 20100301
  12. AMPHOTERICIN B [Suspect]
     Indication: PNEUMONIA
     Dosage: (100 MG INTRAVENOUS (NOT OTHERWISE SPECIFIED) (100 MG QD INTRAVENOUS (NOT OTHERWISE SPECIFIED)
     Route: 042
     Dates: start: 20100407, end: 20100412
  13. VALPROATE SODIUM [Concomitant]
  14. MINOCYCLINE HYDROCHLORIDE [Concomitant]
  15. BUDESONIDE [Concomitant]
  16. ERYTHROCIN [Suspect]
     Indication: PRIMARY CILIARY DYSKINESIA
     Dosage: (200 MG BID ORAL)
     Route: 048
     Dates: end: 20100412
  17. TAZOBACTAM [Concomitant]
  18. PHENOBARBITAL TAB [Concomitant]
  19. PRANLUKAST [Concomitant]
  20. SODIUM BROMIDE [Concomitant]
  21. CLONIDINE HYDROCHLORIDE [Concomitant]
  22. NATURAL ALUMINUM SILICATE [Concomitant]

REACTIONS (10)
  - RESPIRATORY FAILURE [None]
  - CARDIAC ARREST [None]
  - ABDOMINAL DISTENSION [None]
  - PANCREATITIS ACUTE [None]
  - ACIDOSIS [None]
  - VOMITING [None]
  - BLOOD PRESSURE DECREASED [None]
  - DISSEMINATED INTRAVASCULAR COAGULATION [None]
  - ANURIA [None]
  - HEART RATE DECREASED [None]
